FAERS Safety Report 18701397 (Version 1)
Quarter: 2021Q1

REPORT INFORMATION
  Report Type: Spontaneous
  Country: US (occurrence: US)
  Receive Date: 20210105
  Receipt Date: 20210105
  Transmission Date: 20210419
  Serious: Yes (Other)
  Sender: FDA-Public Use
  Company Number: NVSC2020US347056

PATIENT
  Sex: Male

DRUGS (1)
  1. XIIDRA [Suspect]
     Active Substance: LIFITEGRAST
     Indication: DRY EYE
     Dosage: UNK
     Route: 065

REACTIONS (6)
  - Astigmatism [Unknown]
  - Eyelid disorder [Unknown]
  - Ocular discomfort [Unknown]
  - Eye pain [Unknown]
  - Nephrolithiasis [Unknown]
  - Ocular hyperaemia [Unknown]
